FAERS Safety Report 10582266 (Version 1)
Quarter: 2014Q4

REPORT INFORMATION
  Report Type: Spontaneous
  Country: JP (occurrence: JP)
  Receive Date: 20141113
  Receipt Date: 20141113
  Transmission Date: 20150529
  Serious: Yes (Other)
  Sender: FDA-Public Use
  Company Number: JP-SA-2014SA155598

PATIENT
  Age: 78 Year
  Sex: Male

DRUGS (3)
  1. XELODA [Concomitant]
     Active Substance: CAPECITABINE
     Indication: SMALL INTESTINE CARCINOMA
     Dosage: TOTAL OF 14 CYCLES
     Route: 065
  2. AVASTIN [Concomitant]
     Active Substance: BEVACIZUMAB
     Indication: SMALL INTESTINE CARCINOMA
     Dosage: TOTAL OF 14 CYCLES
  3. ELPLAT [Suspect]
     Active Substance: OXALIPLATIN
     Indication: SMALL INTESTINE CARCINOMA
     Dosage: TOTAL OF 14 CYCLES
     Route: 041

REACTIONS (2)
  - Neuropathy peripheral [Unknown]
  - Cerebral haemorrhage [Unknown]
